FAERS Safety Report 11167152 (Version 1)
Quarter: 2015Q2

REPORT INFORMATION
  Report Type: Report from Study
  Country: CN (occurrence: CN)
  Receive Date: 20150605
  Receipt Date: 20150605
  Transmission Date: 20150821
  Serious: Yes (Life-Threatening, Hospitalization)
  Sender: FDA-Public Use
  Company Number: CN-CELGENE-035-CCAZA-14033416

PATIENT
  Age: 56 Year
  Sex: Male
  Weight: 61 kg

DRUGS (2)
  1. AZACITIDINE INJECTABLE [Suspect]
     Active Substance: AZACITIDINE
     Indication: MYELODYSPLASTIC SYNDROME
     Route: 058
     Dates: start: 20131225, end: 20131231
  2. AZACITIDINE INJECTABLE [Suspect]
     Active Substance: AZACITIDINE
     Route: 058
     Dates: start: 20140219, end: 20140225

REACTIONS (1)
  - Pneumonia [Not Recovered/Not Resolved]

NARRATIVE: CASE EVENT DATE: 20140317
